FAERS Safety Report 5444429-1 (Version None)
Quarter: 2007Q3

REPORT INFORMATION
  Report Type: 
  Country: None (occurrence: None)
  Receive Date: 20070906
  Receipt Date: 20070831
  Transmission Date: 20080115
  Serious: Yes (Hospitalization)
  Sender: FDA-Public Use
  Company Number: HQWYE010905SEP07

PATIENT
  Sex: Female
  Weight: 69 kg

DRUGS (15)
  1. SIROLIMUS [Suspect]
     Indication: PROPHYLAXIS AGAINST TRANSPLANT REJECTION
     Route: 048
     Dates: start: 20060304, end: 20060622
  2. URSODIOL [Concomitant]
     Dosage: UNKNOWN
     Route: 065
     Dates: start: 20040802
  3. ACETAMINOPHEN [Concomitant]
     Dosage: UNKNOWN
     Route: 065
     Dates: start: 20051007
  4. METAMIDE [Concomitant]
  5. PANTOPRAZOLE SODIUM [Concomitant]
     Dosage: UNKNOWN
     Route: 065
     Dates: start: 20060131, end: 20060622
  6. ZINC [Concomitant]
     Dosage: UNKNOWN
     Route: 065
     Dates: start: 20060504
  7. LACTULOSE [Concomitant]
     Dosage: UNKNOWN
     Route: 065
     Dates: start: 20051029
  8. AMOXICILLIN [Concomitant]
     Dosage: UNKNOWN
     Route: 065
     Dates: start: 20060401, end: 20060504
  9. METRONIDAZOLE [Concomitant]
     Dosage: UNKNOWN
     Route: 065
     Dates: start: 20060420, end: 20060504
  10. CLAVULANIC ACID [Concomitant]
     Dosage: UNKNOWN
     Route: 065
     Dates: start: 20060401, end: 20060504
  11. MYCOPHENOLATE MOFETIL [Concomitant]
     Indication: PROPHYLAXIS AGAINST TRANSPLANT REJECTION
     Route: 065
     Dates: start: 20050114, end: 20060502
  12. MYCOPHENOLATE MOFETIL [Concomitant]
     Route: 065
     Dates: start: 20060503
  13. CYCLOSPORINE [Concomitant]
     Indication: PROPHYLAXIS AGAINST TRANSPLANT REJECTION
     Route: 048
     Dates: start: 20060104, end: 20060211
  14. CYCLOSPORINE [Concomitant]
     Route: 048
     Dates: start: 20060212, end: 20060220
  15. SPIRONOLACTONE [Concomitant]
     Dosage: UNKNOWN
     Route: 065
     Dates: start: 20060220

REACTIONS (1)
  - SEROMA [None]
